FAERS Safety Report 8372051-6 (Version None)
Quarter: 2012Q2

REPORT INFORMATION
  Report Type: 
  Country: None (occurrence: None)
  Receive Date: 20120520
  Receipt Date: 20120515
  Transmission Date: 20120825
  Serious: Yes (Hospitalization, Other)
  Sender: FDA-Public Use
  Company Number: US-AMGEN-USASP2012012313

PATIENT
  Age: 74 Year
  Sex: Male
  Weight: 113.38 kg

DRUGS (17)
  1. LIPITOR [Concomitant]
     Dosage: 80 MG, QD
  2. NIASPAN [Concomitant]
     Dosage: 1000 MG, QD
  3. VITAMINS NOS [Concomitant]
     Dosage: UNK
  4. ALLOPURINOL [Concomitant]
     Dosage: 300 MG, QD
  5. FERROUS SULFATE TAB [Concomitant]
     Indication: IRON DEFICIENCY ANAEMIA
     Dosage: 325 MG, UNK
     Dates: start: 20120125
  6. FOLIC ACID [Concomitant]
     Dosage: 1 MG, QD
  7. ASPIRIN [Concomitant]
     Dosage: 81 MG, QD
  8. ABILIFY [Concomitant]
     Dosage: 2 MG, QD
  9. VITAMIN B-12 [Concomitant]
     Dosage: 1000 MUG, BID
  10. PLAVIX [Concomitant]
     Dosage: 75 MG, QD
  11. ACTOS [Concomitant]
     Dosage: 30 MG, QD
  12. PROCRIT [Suspect]
     Indication: NEPHROGENIC ANAEMIA
     Dosage: 40000 IU, Q2WK
     Route: 058
     Dates: start: 20120125
  13. DETROL LA [Concomitant]
     Dosage: 4 MG, QD
  14. TAMSULOSIN HCL [Concomitant]
     Dosage: 0.4 MG, QD
  15. CYMBALTA [Concomitant]
     Dosage: 30 MG, QD
  16. LOSARTAN POTASSIUM [Concomitant]
     Dosage: 100 MG, QD
  17. FUROSEMIDE [Concomitant]
     Dosage: 40 MG, QD

REACTIONS (13)
  - FALL [None]
  - ACTIVITIES OF DAILY LIVING IMPAIRED [None]
  - FATIGUE [None]
  - PULSE ABNORMAL [None]
  - HYPOTENSION [None]
  - CELLULITIS STAPHYLOCOCCAL [None]
  - OEDEMA PERIPHERAL [None]
  - GASTROINTESTINAL HAEMORRHAGE [None]
  - BALANCE DISORDER [None]
  - ASTHENIA [None]
  - CONFUSIONAL STATE [None]
  - DYSPNOEA [None]
  - TREMOR [None]
